FAERS Safety Report 4981760-8 (Version None)
Quarter: 2006Q2

REPORT INFORMATION
  Report Type: 
  Country: None (occurrence: None)
  Receive Date: 20060420
  Receipt Date: 20060420
  Transmission Date: 20061013
  Serious: No
  Sender: FDA-Public Use
  Company Number: None

PATIENT

DRUGS (2)
  1. VALPROIC ACID SYRUP [Suspect]
  2. CHILDREN'S IBUPROFEN [Suspect]

REACTIONS (2)
  - INTERCEPTED DRUG DISPENSING ERROR [None]
  - MEDICATION ERROR [None]
